FAERS Safety Report 5865219-1 (Version None)
Quarter: 2008Q3

REPORT INFORMATION
  Report Type: 
  Country: None (occurrence: None)
  Receive Date: 20080829
  Receipt Date: 20080822
  Transmission Date: 20090109
  Serious: Yes (Hospitalization)
  Sender: FDA-Public Use
  Company Number: B0534133A

PATIENT
  Age: 57 Year
  Sex: Male

DRUGS (1)
  1. AUGMENTIN '125' [Suspect]
     Indication: DRUG USE FOR UNKNOWN INDICATION
     Route: 048
     Dates: start: 20080401, end: 20080401

REACTIONS (9)
  - CHROMATURIA [None]
  - FAECES DISCOLOURED [None]
  - GALLBLADDER CHOLESTEROLOSIS [None]
  - GALLBLADDER DISORDER [None]
  - HEPATITIS CHOLESTATIC [None]
  - JAUNDICE [None]
  - JAUNDICE CHOLESTATIC [None]
  - LYMPHADENOPATHY [None]
  - OCULAR ICTERUS [None]
